FAERS Safety Report 4710033-3 (Version None)
Quarter: 2005Q3

REPORT INFORMATION
  Report Type: 
  Country: None (occurrence: None)
  Receive Date: 20050708
  Receipt Date: 20050208
  Transmission Date: 20060218
  Serious: Yes (Death, Other)
  Sender: FDA-Public Use
  Company Number: PHEH2005US01832

PATIENT
  Age: 70 Year
  Sex: Male
  Weight: 91 kg

DRUGS (14)
  1. CARBOPLATIN [Concomitant]
     Indication: NON-SMALL CELL LUNG CANCER
     Dosage: 625MG Q3WK
     Dates: start: 20040206, end: 20050408
  2. TAXOL [Concomitant]
     Indication: NON-SMALL CELL LUNG CANCER
     Dosage: 220MG QWK
     Dates: start: 20040206, end: 20040402
  3. TAXOTERE [Concomitant]
     Indication: NON-SMALL CELL LUNG CANCER
     Dosage: 180MG Q3WK
     Dates: start: 20040408, end: 20040408
  4. GEMZAR [Concomitant]
  5. ARANESP [Concomitant]
     Indication: ANAEMIA
     Dosage: 400MCG Q2WK
     Dates: start: 20040226, end: 20040809
  6. NEULASTA [Concomitant]
  7. VITAMIN B COMPLEX CAP [Concomitant]
  8. ANDROGEL [Concomitant]
  9. ZOMETA [Suspect]
     Indication: METASTASES TO BONE
     Dosage: 4 MG EVERY MONTH
     Dates: start: 20040213, end: 20041027
  10. PROTONIX [Concomitant]
     Indication: GASTRITIS
     Dosage: 40MG QD
     Dates: start: 20040201, end: 20041201
  11. CISPLATIN [Concomitant]
     Indication: NON-SMALL CELL LUNG CANCER
     Dosage: 220MG Q3WK
     Dates: start: 20040429, end: 20040423
  12. NEUPOGEN [Concomitant]
     Indication: NEUTROPENIA
     Dosage: 480MCG QD PRN
     Dates: start: 20040306, end: 20040726
  13. COUMADIN [Concomitant]
     Indication: PROPHYLAXIS
     Dosage: 1MG QD
     Dates: start: 20040206, end: 20040501
  14. DECADRON                                /CAN/ [Concomitant]
     Indication: HYPERSENSITIVITY
     Dates: start: 20040501, end: 20050201

REACTIONS (5)
  - GINGIVAL PAIN [None]
  - MALIGNANT NEOPLASM PROGRESSION [None]
  - METASTASES TO CENTRAL NERVOUS SYSTEM [None]
  - ORAL SURGERY [None]
  - OSTEONECROSIS [None]
